FAERS Safety Report 17397022 (Version 1)
Quarter: 2020Q1

REPORT INFORMATION
  Report Type: Spontaneous
  Country: CA (occurrence: CA)
  Receive Date: 20200210
  Receipt Date: 20200210
  Transmission Date: 20200409
  Serious: Yes (Hospitalization, Other)
  Sender: FDA-Public Use
  Company Number: CA-009507513-2002CAN002280

PATIENT
  Age: 56 Year
  Sex: Female
  Weight: 80 kg

DRUGS (23)
  1. ATROVENT [Suspect]
     Active Substance: IPRATROPIUM BROMIDE
     Indication: PRODUCT USED FOR UNKNOWN INDICATION
     Dosage: DOSAGE FORM NOT SPECIFIED
     Route: 065
  2. CICLESONIDE [Suspect]
     Active Substance: CICLESONIDE
     Indication: PRODUCT USED FOR UNKNOWN INDICATION
     Dosage: DOSAGE FORM NOT SPECIFIED
     Route: 065
  3. UNIPHYL [Suspect]
     Active Substance: THEOPHYLLINE ANHYDROUS
     Indication: PRODUCT USED FOR UNKNOWN INDICATION
     Dosage: 600 MILLIGRAM, 1 EVERY 1 DAYS
     Route: 065
  4. BUPROPION HYDROCHLORIDE. [Concomitant]
     Active Substance: BUPROPION HYDROCHLORIDE
     Indication: DEPRESSION
     Dosage: 300 MILLIGRAM, 1 EVERY 1 DAYS
     Route: 048
  5. DULOXETINE HYDROCHLORIDE. [Concomitant]
     Active Substance: DULOXETINE HYDROCHLORIDE
     Indication: DEPRESSION
     Dosage: 60 MILLIGRAM, 1 EVERY 1 DAYS
     Route: 048
  6. HYDROCHLOROTHIAZIDE (+) VALSARTAN [Concomitant]
     Active Substance: HYDROCHLOROTHIAZIDE\VALSARTAN
     Indication: PRODUCT USED FOR UNKNOWN INDICATION
     Dosage: DOSE: NOT REPORTED, 1 EVERY 1 DAYS
     Route: 065
  7. VALSARTAN. [Concomitant]
     Active Substance: VALSARTAN
     Indication: PRODUCT USED FOR UNKNOWN INDICATION
     Dosage: 160 MILLIGRAM, 1 EVERY 1 DAYS; DOSAGE NOT SPECIFIED
     Route: 048
  8. AVAMYS [Suspect]
     Active Substance: FLUTICASONE FUROATE
     Indication: ASTHMA
     Dosage: UNK
  9. ERGOCALCIFEROL. [Concomitant]
     Active Substance: ERGOCALCIFEROL
     Indication: PRODUCT USED FOR UNKNOWN INDICATION
     Dosage: 2000 DOSAGE FORM, 1 EVERY 1 DAYS
     Route: 048
  10. SINGULAIR [Suspect]
     Active Substance: MONTELUKAST SODIUM
     Indication: PRODUCT USED FOR UNKNOWN INDICATION
     Dosage: 10 MILLIGRAM, 1 EVERY 1 DAYS; DOSAGE FORM NOT SPECIFIED
     Route: 048
  11. SYMBICORT [Suspect]
     Active Substance: BUDESONIDE\FORMOTEROL FUMARATE DIHYDRATE
     Indication: PRODUCT USED FOR UNKNOWN INDICATION
     Dosage: 2 DOSAGE FORMS, 2 EVERY 1 DAYS
     Route: 065
  12. REACTINE [Concomitant]
     Indication: HYPERSENSITIVITY
     Dosage: DOSAGE FORM NOT SPECIFIED
     Route: 065
  13. FLOVENT [Suspect]
     Active Substance: FLUTICASONE PROPIONATE
     Indication: ASTHMA
     Dosage: 2 DOSAGE FORMS, 2 EVERY 1 DAYS; DOSAGE FROM NOT SPECIFIED
     Route: 065
  14. ALBUTEROL SULFATE. [Suspect]
     Active Substance: ALBUTEROL SULFATE
     Indication: ASTHMA
     Dosage: UNK
     Route: 065
  15. PREMARIN [Concomitant]
     Active Substance: ESTROGENS, CONJUGATED
     Indication: PRODUCT USED FOR UNKNOWN INDICATION
     Dosage: 0.925 MILLIGRAM, 1 EVERY 1 DAYS; DOSAGE FORM NOT SPECIFIED
     Route: 048
  16. PREDNISONE. [Suspect]
     Active Substance: PREDNISONE
     Indication: PRODUCT USED FOR UNKNOWN INDICATION
     Dosage: 100 MILLIGRAM, 1 EVERY 1 DAYS; DOSAGE FORM NOT SPECIFIED
     Route: 048
  17. PANTOPRAZOLE SODIUM. [Concomitant]
     Active Substance: PANTOPRAZOLE SODIUM
     Indication: PRODUCT USED FOR UNKNOWN INDICATION
     Dosage: 40 MILLIGRAM, 2 EVERY 1 DAYS
     Route: 048
  18. ADVAIR HFA [Suspect]
     Active Substance: FLUTICASONE PROPIONATE\SALMETEROL XINAFOATE
     Indication: ASTHMA
     Dosage: 1 DOSAGE FORM, 3 EVERY 1 DAYS; DOSAGE FORM NOT SPECIFIED
     Route: 065
  19. ALVESCO [Suspect]
     Active Substance: CICLESONIDE
     Indication: PRODUCT USED FOR UNKNOWN INDICATION
     Dosage: 2 DOSAGE FORMS, 4 EVERY 1 DAYS
  20. THEOPHYLLINE [Suspect]
     Active Substance: THEOPHYLLINE ANHYDROUS
     Indication: PRODUCT USED FOR UNKNOWN INDICATION
     Dosage: 600 MILLIGRAM, 1 EVERY 1 DAYS
     Route: 065
  21. ESOMEPRAZOLE MAGNESIUM. [Concomitant]
     Active Substance: ESOMEPRAZOLE MAGNESIUM
     Indication: GASTROOESOPHAGEAL REFLUX DISEASE
     Dosage: UNK
     Route: 065
  22. GLYCOPYRROLATE. [Suspect]
     Active Substance: GLYCOPYRROLATE
     Indication: PRODUCT USED FOR UNKNOWN INDICATION
     Dosage: 50 MICROGRAM, 1 EVERY 1 DAYS
  23. PAROXETINE HYDROCHLORIDE. [Concomitant]
     Active Substance: PAROXETINE HYDROCHLORIDE
     Indication: PRODUCT USED FOR UNKNOWN INDICATION
     Dosage: UNK
     Route: 065

REACTIONS (28)
  - Therapeutic product effect incomplete [Unknown]
  - Breath sounds abnormal [Unknown]
  - Bronchial haemorrhage [Unknown]
  - Herpes zoster [Unknown]
  - Respiratory disorder [Unknown]
  - Rhonchi [Unknown]
  - Hypersensitivity [Unknown]
  - Nasal congestion [Unknown]
  - Weight increased [Unknown]
  - Ankle fracture [Unknown]
  - Asthma [Unknown]
  - Granuloma [Unknown]
  - Sinusitis [Unknown]
  - Lower respiratory tract infection [Unknown]
  - Obstructive airways disorder [Unknown]
  - Oxygen saturation decreased [Unknown]
  - Affective disorder [Unknown]
  - Bronchial disorder [Unknown]
  - Endometrial ablation [Unknown]
  - Infection [Unknown]
  - Nasal turbinate hypertrophy [Unknown]
  - Rhinitis [Unknown]
  - Condition aggravated [Unknown]
  - Dyspnoea [Unknown]
  - Wheezing [Unknown]
  - Maternal exposure during pregnancy [Unknown]
  - Bronchial neoplasm [Unknown]
  - Sinus tachycardia [Unknown]
